FAERS Safety Report 6655296-2 (Version None)
Quarter: 2010Q2

REPORT INFORMATION
  Report Type: 
  Country: None (occurrence: None)
  Receive Date: 20100324
  Receipt Date: 20100309
  Transmission Date: 20101027
  Serious: Yes (Other)
  Sender: FDA-Public Use
  Company Number: JP-SOLVAY-00309007449

PATIENT
  Age: 38 Year
  Sex: Male

DRUGS (16)
  1. FLUVOXAMINE MALEATE [Suspect]
     Indication: DEPRESSION
     Dosage: 150 MILLIGRAM(S) ORAL
     Route: 048
     Dates: start: 20080319, end: 20090725
  2. MAJORPIN (ZOTEPINE) [Suspect]
     Indication: HALLUCINATION
     Dosage: 180 MILLIGRAM(S), ORAL; 60 MILLIGRAM(S), ORAL
     Route: 048
     Dates: start: 20080109, end: 20080325
  3. MAJORPIN (ZOTEPINE) [Suspect]
     Indication: HALLUCINATION
     Dosage: 180 MILLIGRAM(S), ORAL; 60 MILLIGRAM(S), ORAL
     Route: 048
     Dates: start: 20080326, end: 20080329
  4. HALOPERIDOL [Suspect]
     Indication: DELUSION
     Dosage: 18 MILLIGRAM(S), ORAL; 54 MILLIGRAM(S), ORAL; 36 MILLIGRAM(S), ORAL
     Route: 048
     Dates: start: 20040609, end: 20080108
  5. HALOPERIDOL [Suspect]
     Indication: HALLUCINATION
     Dosage: 18 MILLIGRAM(S), ORAL; 54 MILLIGRAM(S), ORAL; 36 MILLIGRAM(S), ORAL
     Route: 048
     Dates: start: 20040609, end: 20080108
  6. HALOPERIDOL [Suspect]
     Indication: DELUSION
     Dosage: 18 MILLIGRAM(S), ORAL; 54 MILLIGRAM(S), ORAL; 36 MILLIGRAM(S), ORAL
     Route: 048
     Dates: start: 20080109, end: 20080320
  7. HALOPERIDOL [Suspect]
     Indication: HALLUCINATION
     Dosage: 18 MILLIGRAM(S), ORAL; 54 MILLIGRAM(S), ORAL; 36 MILLIGRAM(S), ORAL
     Route: 048
     Dates: start: 20080109, end: 20080320
  8. HALOPERIDOL [Suspect]
     Indication: DELUSION
     Dosage: 18 MILLIGRAM(S), ORAL; 54 MILLIGRAM(S), ORAL; 36 MILLIGRAM(S), ORAL
     Route: 048
     Dates: start: 20080321, end: 20090327
  9. HALOPERIDOL [Suspect]
     Indication: HALLUCINATION
     Dosage: 18 MILLIGRAM(S), ORAL; 54 MILLIGRAM(S), ORAL; 36 MILLIGRAM(S), ORAL
     Route: 048
     Dates: start: 20080321, end: 20090327
  10. LEVOTOMIN (LEVOMEPROMAZINE MALEATE) [Suspect]
     Indication: DELUSION
     Dosage: 300 MILLIGRAM(S), ORAL
     Route: 048
     Dates: start: 20080109
  11. LEVOTOMIN (LEVOMEPROMAZINE MALEATE) [Suspect]
     Indication: HALLUCINATION
     Dosage: 300 MILLIGRAM(S), ORAL
     Route: 048
     Dates: start: 20080109
  12. BACLOFEN [Suspect]
     Indication: DELUSION
     Dosage: 9 MILLIGRAM(S), ORAL
     Route: 048
     Dates: start: 20080109, end: 20090703
  13. BACLOFEN [Suspect]
     Indication: HALLUCINATION
     Dosage: 9 MILLIGRAM(S), ORAL
     Route: 048
     Dates: start: 20080109, end: 20090703
  14. BIPERIDEN HYDROCHLORIDE TAB [Concomitant]
  15. PROMETHAZINE HCL [Concomitant]
  16. BROTIZOLAM [Suspect]

REACTIONS (2)
  - CONVULSION [None]
  - DRUG INTERACTION [None]
